FAERS Safety Report 7091196-4 (Version None)
Quarter: 2010Q4

REPORT INFORMATION
  Report Type: 
  Country: None (occurrence: None)
  Receive Date: 20101109
  Receipt Date: 20101028
  Transmission Date: 20110411
  Serious: Yes (Hospitalization)
  Sender: FDA-Public Use
  Company Number: DZ-ROCHE-738052

PATIENT
  Age: 40 Year
  Sex: Female

DRUGS (1)
  1. HERCEPTIN [Suspect]
     Indication: BREAST CANCER
     Dosage: DOSE: UNKNOWN, FREQUENCY: PER CURE.
     Route: 042
     Dates: end: 20101001

REACTIONS (2)
  - CARDIO-RESPIRATORY DISTRESS [None]
  - PULMONARY EMBOLISM [None]
